FAERS Safety Report 16133916 (Version 3)
Quarter: 2019Q2

REPORT INFORMATION
  Report Type: Spontaneous
  Country: US (occurrence: US)
  Receive Date: 20190329
  Receipt Date: 20190419
  Transmission Date: 20190711
  Serious: No
  Sender: FDA-Public Use
  Company Number: US-VERTEX PHARMACEUTICALS-2019-002558

PATIENT
  Sex: Female

DRUGS (9)
  1. KENALOG [Concomitant]
     Active Substance: TRIAMCINOLONE ACETONIDE
     Indication: DRY SKIN
     Dosage: APPLY 1 APPLICATION EXTERNALLY, QD AS NEEDED
  2. FLUORIDE                           /00168201/ [Concomitant]
     Active Substance: SODIUM FLUORIDE
     Dosage: 1.1 MG (0.5 F) TABLET, QD
     Route: 048
  3. KALYDECO [Suspect]
     Active Substance: IVACAFTOR
     Indication: CYSTIC FIBROSIS
     Dosage: 150 MG, BID
     Route: 048
     Dates: start: 20130906
  4. MIRALAX [Concomitant]
     Active Substance: POLYETHYLENE GLYCOL 3350
     Dosage: POWDER MIXED IN 8 OZ JUICE, AS DIRECTED
  5. CHOLECALCIFEROL [Concomitant]
     Active Substance: CHOLECALCIFEROL
     Dosage: 1 TABLET (1000 UNIT), QD
     Route: 048
  6. HYPERSAL [Concomitant]
     Dosage: INHALE 4 ML (1 VIAL) BY NEBULIZER, BID
     Route: 055
  7. CIPROFLOXACIN. [Concomitant]
     Active Substance: CIPROFLOXACIN
  8. PULMOZYME [Concomitant]
     Active Substance: DORNASE ALFA
     Dosage: INHALE 2.5 ML BY NEBULIZATION, QD
     Route: 055
  9. XOPENEX HFA [Concomitant]
     Active Substance: LEVALBUTEROL TARTRATE
     Dosage: INHALE 2 PUFFS (45 MCG) EVERY 6 HOURS PRN. USE WITH SPACER
     Route: 055

REACTIONS (1)
  - Headache [Recovering/Resolving]
